FAERS Safety Report 13640152 (Version 4)
Quarter: 2024Q1

REPORT INFORMATION
  Report Type: Report from Study
  Country: US (occurrence: US)
  Receive Date: 20170609
  Receipt Date: 20240206
  Transmission Date: 20240410
  Serious: Yes (Hospitalization, Other)
  Sender: FDA-Public Use
  Company Number: US-JAZZ-2017-US-006687

PATIENT
  Age: 46 Year
  Sex: Male

DRUGS (33)
  1. XYREM [Suspect]
     Active Substance: SODIUM OXYBATE
     Indication: Narcolepsy
     Dosage: 3 G, BID
     Route: 048
     Dates: start: 200410, end: 200412
  2. XYREM [Suspect]
     Active Substance: SODIUM OXYBATE
     Dosage: 3.75 G, BID
     Route: 048
     Dates: start: 200412, end: 200502
  3. XYREM [Suspect]
     Active Substance: SODIUM OXYBATE
     Dosage: 4.5 G, BID
     Route: 048
     Dates: start: 200502
  4. ALLOPURINOL [Concomitant]
     Active Substance: ALLOPURINOL
  5. COLACE [Concomitant]
     Active Substance: DOCUSATE SODIUM
  6. BISACODYL [Concomitant]
     Active Substance: BISACODYL
  7. METHYLPREDNISOLONE [Concomitant]
     Active Substance: METHYLPREDNISOLONE
  8. ATENOLOL [Concomitant]
     Active Substance: ATENOLOL
  9. CLOBETASOL [Concomitant]
     Active Substance: CLOBETASOL
  10. CLONAZEPAM [Concomitant]
     Active Substance: CLONAZEPAM
  11. CRESTOR [Concomitant]
     Active Substance: ROSUVASTATIN CALCIUM
  12. CYMBALTA [Concomitant]
     Active Substance: DULOXETINE HYDROCHLORIDE
  13. ENBREL [Concomitant]
     Active Substance: ETANERCEPT
  14. GABAPENTIN [Concomitant]
     Active Substance: GABAPENTIN
  15. GEMFIBROZIL [Concomitant]
     Active Substance: GEMFIBROZIL
  16. HYDROCHLOROTHIAZIDE [Concomitant]
     Active Substance: HYDROCHLOROTHIAZIDE
  17. LIDODERM [Concomitant]
     Active Substance: LIDOCAINE
  18. LYRICA [Concomitant]
     Active Substance: PREGABALIN
  19. MELATONIN [Concomitant]
     Active Substance: MELATONIN
  20. NASONEX [Concomitant]
     Active Substance: MOMETASONE FUROATE
  21. NUVIGIL [Concomitant]
     Active Substance: ARMODAFINIL
  22. PIROXICAM [Concomitant]
     Active Substance: PIROXICAM
  23. PREVACID [Concomitant]
     Active Substance: LANSOPRAZOLE
  24. RAMIPRIL [Concomitant]
     Active Substance: RAMIPRIL
  25. TACLONEX [Concomitant]
     Active Substance: BETAMETHASONE DIPROPIONATE\CALCIPOTRIENE\CALCIPOTRIENE HYDRATE
  26. VICODIN [Concomitant]
     Active Substance: ACETAMINOPHEN\HYDROCODONE BITARTRATE
  27. DICLOFENAC [Concomitant]
     Active Substance: DICLOFENAC
  28. VYVANSE [Concomitant]
     Active Substance: LISDEXAMFETAMINE DIMESYLATE
  29. ASPIRIN [Concomitant]
     Active Substance: ASPIRIN
  30. IRON [Concomitant]
     Active Substance: IRON
  31. FISH OIL [Concomitant]
     Active Substance: FISH OIL
  32. PROCTOSOL [Concomitant]
  33. ALCOHOL [Concomitant]
     Active Substance: ALCOHOL
     Indication: Product used for unknown indication
     Dosage: UNK
     Dates: start: 20151013

REACTIONS (13)
  - Loss of consciousness [Unknown]
  - Retinal detachment [Unknown]
  - Visual impairment [Not Recovered/Not Resolved]
  - Hypokalaemia [Recovered/Resolved]
  - Dehydration [Unknown]
  - Hypotension [Unknown]
  - Lumbar spinal stenosis [Not Recovered/Not Resolved]
  - Haemorrhoids [Not Recovered/Not Resolved]
  - Blood creatinine increased [Unknown]
  - Constipation [Not Recovered/Not Resolved]
  - Diarrhoea [Unknown]
  - Amnesia [Unknown]
  - Tremor [Not Recovered/Not Resolved]

NARRATIVE: CASE EVENT DATE: 20060201
